FAERS Safety Report 13853166 (Version 1)
Quarter: 2017Q3

REPORT INFORMATION
  Report Type: Spontaneous
  Country: US (occurrence: US)
  Receive Date: 20170809
  Receipt Date: 20170809
  Transmission Date: 20171127
  Serious: Yes (Death)
  Sender: FDA-Public Use
  Company Number: None

PATIENT
  Age: 43 Year
  Sex: Female

DRUGS (11)
  1. DULOXETINE HCL [Concomitant]
     Active Substance: DULOXETINE HYDROCHLORIDE
  2. HYDROXYCHLOROQUINE SULFATE. [Concomitant]
     Active Substance: HYDROXYCHLOROQUINE SULFATE
  3. GABAPENTIN. [Concomitant]
     Active Substance: GABAPENTIN
  4. BACLOFEN. [Concomitant]
     Active Substance: BACLOFEN
  5. FOLIC ACID. [Concomitant]
     Active Substance: FOLIC ACID
  6. ZOLPIDEM TARTRATE. [Concomitant]
     Active Substance: ZOLPIDEM TARTRATE
  7. OXCARBAZEPINE. [Concomitant]
     Active Substance: OXCARBAZEPINE
  8. COPAXONE [Suspect]
     Active Substance: GLATIRAMER ACETATE
     Indication: MULTIPLE SCLEROSIS
     Dosage: ?          OTHER FREQUENCY:3 TIMES A WEEK;?
     Route: 058
  9. CELEBREX [Concomitant]
     Active Substance: CELECOXIB
  10. METHOTREXATE. [Concomitant]
     Active Substance: METHOTREXATE
  11. XELJANZ [Concomitant]
     Active Substance: TOFACITINIB CITRATE

REACTIONS (1)
  - Death [None]
